FAERS Safety Report 24882369 (Version 1)
Quarter: 2025Q1

REPORT INFORMATION
  Report Type: Spontaneous
  Country: US (occurrence: None)
  Receive Date: 20250123
  Receipt Date: 20250123
  Transmission Date: 20250409
  Serious: Yes (Other)
  Sender: FDA-CTU
  Company Number: None

PATIENT
  Age: 48 Year
  Sex: Female

DRUGS (1)
  1. AIMOVIG [Suspect]
     Active Substance: ERENUMAB-AOOE
     Indication: Migraine
     Dosage: OTHER FREQUENCY : QM;?
     Route: 058
     Dates: start: 20241022, end: 20241223

REACTIONS (4)
  - Hypersensitivity [None]
  - Urticaria [None]
  - Erythema [None]
  - Injection site swelling [None]

NARRATIVE: CASE EVENT DATE: 20241223
